FAERS Safety Report 5928203-5 (Version None)
Quarter: 2008Q4

REPORT INFORMATION
  Report Type: 
  Country: None (occurrence: None)
  Receive Date: 20081023
  Receipt Date: 20081015
  Transmission Date: 20090506
  Serious: Yes (Other)
  Sender: FDA-Public Use
  Company Number: PHHY2008BR24924

PATIENT
  Age: 62 Year
  Sex: Female
  Weight: 69 kg

DRUGS (5)
  1. GALVUS MET COMBIPACK [Suspect]
     Indication: TYPE 2 DIABETES MELLITUS
     Dosage: 850/100 MG /DAY
     Route: 048
  2. GALVUS MET COMBIPACK [Suspect]
     Dosage: 850/50MG/BID
     Route: 048
  3. AMARYL [Concomitant]
     Indication: DIABETES MELLITUS
     Dosage: HALF TABLET DAILY
     Route: 048
  4. LEXOTAN [Concomitant]
     Dosage: HALF TABLET DAILY
  5. FLUOXETINE [Concomitant]
     Dosage: 20 MG, QD

REACTIONS (10)
  - COUGH [None]
  - DEAFNESS [None]
  - DYSPHONIA [None]
  - EMOTIONAL DISTRESS [None]
  - FEELING HOT [None]
  - INFLUENZA [None]
  - INSOMNIA [None]
  - OROPHARYNGEAL PAIN [None]
  - STRESS [None]
  - TINNITUS [None]
